FAERS Safety Report 24052784 (Version 1)
Quarter: 2024Q3

REPORT INFORMATION
  Report Type: Report from Study
  Country: GB (occurrence: GB)
  Receive Date: 20240705
  Receipt Date: 20240705
  Transmission Date: 20241016
  Serious: Yes (Other)
  Sender: AMGEN
  Company Number: GB-002147023-NVSC2024GB135804

PATIENT
  Sex: Female

DRUGS (1)
  1. AIMOVIG [Suspect]
     Active Substance: ERENUMAB-AOOE
     Indication: Migraine
     Dosage: 140 MG (4 WEEKLY)
     Route: 058

REACTIONS (2)
  - Syncope [Unknown]
  - Blood pressure increased [Recovering/Resolving]
